FAERS Safety Report 7112300-5 (Version None)
Quarter: 2010Q4

REPORT INFORMATION
  Report Type: 
  Country: None (occurrence: None)
  Receive Date: 20101119
  Receipt Date: 20100616
  Transmission Date: 20110411
  Serious: No
  Sender: FDA-Public Use
  Company Number: A0865537A

PATIENT
  Sex: Male

DRUGS (5)
  1. AVODART [Suspect]
     Indication: BENIGN PROSTATIC HYPERPLASIA
     Dosage: 1CAP PER DAY
     Route: 048
     Dates: start: 20100301, end: 20100501
  2. DIOXIN [Concomitant]
  3. LIPITOR [Concomitant]
  4. ACTOS [Concomitant]
  5. GLIPIZIDE [Concomitant]

REACTIONS (1)
  - OEDEMA MOUTH [None]
